FAERS Safety Report 9632465 (Version 1)
Quarter: 2013Q4

REPORT INFORMATION
  Report Type: Spontaneous
  Country: GR (occurrence: None)
  Receive Date: 20131016
  Receipt Date: 20131016
  Transmission Date: 20140711
  Serious: Yes (Other)
  Sender: FDA-Public Use
  Company Number: GR-013256

PATIENT
  Age: 7 Year
  Sex: Female

DRUGS (1)
  1. DESMOPRESSIN [Suspect]
     Indication: DIABETES INSIPIDUS

REACTIONS (1)
  - Histiocytosis [None]
